FAERS Safety Report 6920260-2 (Version None)
Quarter: 2010Q3

REPORT INFORMATION
  Report Type: 
  Country: None (occurrence: None)
  Receive Date: 20100811
  Receipt Date: 20100803
  Transmission Date: 20110219
  Serious: Yes (Death)
  Sender: FDA-Public Use
  Company Number: US-AMGEN-QUU429061

PATIENT
  Sex: Male

DRUGS (4)
  1. NPLATE [Suspect]
     Indication: IDIOPATHIC THROMBOCYTOPENIC PURPURA
     Dates: start: 20100429, end: 20100722
  2. CORTICOSTEROIDS [Concomitant]
     Dates: start: 20040901
  3. IMMU-G [Concomitant]
     Dates: start: 20100107
  4. DANAZOL [Concomitant]
     Dates: start: 20061001

REACTIONS (1)
  - CARDIAC ARREST [None]
